FAERS Safety Report 23132703 (Version 1)
Quarter: 2023Q4

REPORT INFORMATION
  Report Type: Spontaneous
  Country: US (occurrence: US)
  Receive Date: 20231101
  Receipt Date: 20231101
  Transmission Date: 20240110
  Serious: No
  Sender: FDA-Public Use
  Company Number: US-MARIUS PHARMACEUTICALS-2023US002900

PATIENT

DRUGS (1)
  1. KYZATREX [Suspect]
     Active Substance: TESTOSTERONE UNDECANOATE
     Indication: Product used for unknown indication
     Dosage: 200 MG, BID W/FOOD
     Route: 048
     Dates: start: 202307, end: 202307

REACTIONS (4)
  - Hot flush [Recovered/Resolved]
  - Hyperhidrosis [Recovered/Resolved]
  - Weight increased [Recovered/Resolved]
  - Heart rate increased [Recovered/Resolved]

NARRATIVE: CASE EVENT DATE: 20230701
